FAERS Safety Report 25297832 (Version 1)
Quarter: 2025Q2

REPORT INFORMATION
  Report Type: Spontaneous
  Country: US (occurrence: US)
  Receive Date: 20250512
  Receipt Date: 20250512
  Transmission Date: 20250716
  Serious: No
  Sender: UCB
  Company Number: US-UCBSA-2024040685

PATIENT
  Sex: Male
  Weight: 96.145 kg

DRUGS (7)
  1. CIMZIA [Suspect]
     Active Substance: CERTOLIZUMAB PEGOL
     Indication: Psoriasis
  2. COSENTYX [Concomitant]
     Active Substance: SECUKINUMAB
     Indication: Psoriasis
  3. TALTZ [Concomitant]
     Active Substance: IXEKIZUMAB
     Indication: Psoriasis
  4. HUMIRA [Concomitant]
     Active Substance: ADALIMUMAB
     Indication: Psoriasis
  5. TREMFYA [Concomitant]
     Active Substance: GUSELKUMAB
     Indication: Psoriasis
  6. TACROLIMUS [Concomitant]
     Active Substance: TACROLIMUS
     Indication: Psoriasis
  7. CLOBETASOL [Concomitant]
     Active Substance: CLOBETASOL
     Indication: Psoriasis

REACTIONS (3)
  - Treatment failure [Unknown]
  - Contraindicated product administered [Unknown]
  - Drug intolerance [Unknown]
